FAERS Safety Report 25070986 (Version 1)
Quarter: 2025Q1

REPORT INFORMATION
  Report Type: Spontaneous
  Country: CA (occurrence: CA)
  Receive Date: 20250312
  Receipt Date: 20250312
  Transmission Date: 20250408
  Serious: Yes (Congenital Anomaly)
  Sender: LUNDBECK
  Company Number: CA-LUNDBECK-DKLU4011856

PATIENT

DRUGS (1)
  1. VYEPTI [Suspect]
     Active Substance: EPTINEZUMAB-JJMR
     Indication: Migraine
     Route: 041

REACTIONS (4)
  - Craniofacial deformity [Not Recovered/Not Resolved]
  - External auditory canal atresia [Not Recovered/Not Resolved]
  - Microtia [Not Recovered/Not Resolved]
  - Foetal exposure during pregnancy [Unknown]
